FAERS Safety Report 10290266 (Version 1)
Quarter: 2014Q3

REPORT INFORMATION
  Report Type: Spontaneous
  Country: US (occurrence: None)
  Receive Date: 20140707
  Receipt Date: 20140707
  Transmission Date: 20150326
  Serious: No
  Sender: FDA-Public Use
  Company Number: None

PATIENT
  Age: 59 Year
  Sex: Female
  Weight: 102.06 kg

DRUGS (1)
  1. CELEBREX [Suspect]
     Active Substance: CELECOXIB
     Indication: CHRONIC FATIGUE SYNDROME
     Route: 048

REACTIONS (4)
  - Temperature intolerance [None]
  - Blister [None]
  - Burning sensation [None]
  - Sunburn [None]

NARRATIVE: CASE EVENT DATE: 20140702
